FAERS Safety Report 9103923 (Version 2)
Quarter: 2013Q2

REPORT INFORMATION
  Report Type: Spontaneous
  Country: US (occurrence: US)
  Receive Date: 20130219
  Receipt Date: 20130405
  Transmission Date: 20140414
  Serious: No
  Sender: FDA-Public Use
  Company Number: US-PFIZER INC-2013059090

PATIENT
  Age: 31 Year
  Sex: Female

DRUGS (1)
  1. SOMAVERT [Suspect]
     Indication: ACROMEGALY
     Dosage: 10 MG, UNK
     Route: 058
     Dates: start: 20121226, end: 20130211

REACTIONS (1)
  - Lipohypertrophy [Recovered/Resolved]
